FAERS Safety Report 10042103 (Version 3)
Quarter: 2014Q2

REPORT INFORMATION
  Report Type: Spontaneous
  Country: GB (occurrence: GB)
  Receive Date: 20140327
  Receipt Date: 20140625
  Transmission Date: 20141212
  Serious: Yes (Other)
  Sender: FDA-Public Use
  Company Number: GB-PFIZER INC-2014085879

PATIENT
  Age: 73 Year
  Sex: Male
  Weight: 95.7 kg

DRUGS (4)
  1. ATORVASTATIN [Suspect]
     Indication: HYPERCHOLESTEROLAEMIA
     Dosage: 20 MG, 1X/DAY
     Route: 048
     Dates: start: 20131015, end: 20140310
  2. BISOPROLOL [Concomitant]
     Dosage: UNK
  3. LOSARTAN [Concomitant]
     Dosage: UNK
  4. WARFARIN [Concomitant]
     Dosage: UNK

REACTIONS (3)
  - Irritability [Recovered/Resolved]
  - Impatience [Recovered/Resolved]
  - Aggression [Recovered/Resolved]
